FAERS Safety Report 4631147-2 (Version None)
Quarter: 2005Q2

REPORT INFORMATION
  Report Type: 
  Country: None (occurrence: None)
  Receive Date: 20050407
  Receipt Date: 20050407
  Transmission Date: 20051028
  Serious: Yes (Life-Threatening)
  Sender: FDA-Public Use
  Company Number: None

PATIENT
  Age: 10 Year
  Sex: Male
  Weight: 65 kg

DRUGS (10)
  1. GEMTUZUMAB [Suspect]
     Indication: ACUTE LYMPHOCYTIC LEUKAEMIA
     Dosage: 7.8 MG   X 1 DOSE  INTRAVENOU
     Route: 042
     Dates: start: 20050322, end: 20050322
  2. GEMTUZUMAB [Suspect]
     Indication: LEUKAEMIA RECURRENT
     Dosage: 7.8 MG   X 1 DOSE  INTRAVENOU
     Route: 042
     Dates: start: 20050322, end: 20050322
  3. ALEMTUZUMAB [Concomitant]
  4. MEROPENEM [Concomitant]
  5. VANCOMYCIN [Concomitant]
  6. METHYLPREDNISOLONE [Concomitant]
  7. PENTAMIDINE [Concomitant]
  8. AMBISOME [Concomitant]
  9. PROZAC [Concomitant]
  10. SINGULAIR [Concomitant]

REACTIONS (7)
  - ASCITES [None]
  - FLUID OVERLOAD [None]
  - HYPERBILIRUBINAEMIA [None]
  - HYPOTENSION [None]
  - SEPSIS [None]
  - TRANSAMINASES INCREASED [None]
  - VENOOCCLUSIVE LIVER DISEASE [None]
